FAERS Safety Report 18941975 (Version 25)
Quarter: 2022Q4

REPORT INFORMATION
  Report Type: Report from Study
  Country: CA (occurrence: CA)
  Receive Date: 20210225
  Receipt Date: 20221229
  Transmission Date: 20230113
  Serious: Yes (Other)
  Sender: FDA-Public Use
  Company Number: CA-TAKEDA-CA202013216

PATIENT
  Age: 7 Year
  Sex: Male
  Weight: 27 kg

DRUGS (21)
  1. IDURSULFASE [Suspect]
     Active Substance: IDURSULFASE
     Indication: Mucopolysaccharidosis II
     Dosage: 12 MILLIGRAM, 1/WEEK
     Route: 042
     Dates: start: 20170621
  2. IDURSULFASE [Suspect]
     Active Substance: IDURSULFASE
     Dosage: 12 MILLIGRAM, 1/WEEK
     Route: 042
     Dates: start: 20170621
  3. IDURSULFASE [Suspect]
     Active Substance: IDURSULFASE
     Dosage: 12 MILLIGRAM, 1/WEEK
     Route: 042
     Dates: start: 20170621
  4. IDURSULFASE [Suspect]
     Active Substance: IDURSULFASE
     Dosage: 12 MILLIGRAM, 1/WEEK
     Route: 042
     Dates: start: 20170621
  5. IDURSULFASE [Suspect]
     Active Substance: IDURSULFASE
     Dosage: 2 DOSAGE FORM, 1/WEEK
     Route: 065
     Dates: start: 20170621
  6. IDURSULFASE [Suspect]
     Active Substance: IDURSULFASE
     Dosage: 12 MILLIGRAM, 1/WEEK
     Route: 065
     Dates: start: 20170621
  7. IDURSULFASE [Suspect]
     Active Substance: IDURSULFASE
     Dosage: 12 MILLIGRAM, 1/WEEK
     Route: 065
     Dates: start: 20170621
  8. IDURSULFASE [Suspect]
     Active Substance: IDURSULFASE
     Dosage: 12 MILLIGRAM, 1/WEEK
     Route: 042
     Dates: start: 20170621
  9. IDURSULFASE [Suspect]
     Active Substance: IDURSULFASE
     Dosage: 10.6 MILLIGRAM
     Route: 065
  10. IDURSULFASE [Suspect]
     Active Substance: IDURSULFASE
     Dosage: 12 MILLIGRAM, 1/WEEK
     Route: 065
     Dates: start: 20170621
  11. IDURSULFASE [Suspect]
     Active Substance: IDURSULFASE
     Dosage: 12 MILLIGRAM, 1/WEEK
     Route: 050
     Dates: start: 20170621
  12. IDURSULFASE [Suspect]
     Active Substance: IDURSULFASE
     Dosage: 12 MILLIGRAM, 1/WEEK
     Route: 050
     Dates: start: 20170621
  13. IDURSULFASE [Suspect]
     Active Substance: IDURSULFASE
     Dosage: 2 DOSAGE FORM, 1/WEEK
     Route: 065
     Dates: start: 20170621
  14. IDURSULFASE [Suspect]
     Active Substance: IDURSULFASE
     Dosage: 2 DOSAGE FORM, 1/WEEK
     Route: 050
     Dates: start: 20170621
  15. IDURSULFASE [Suspect]
     Active Substance: IDURSULFASE
     Dosage: 12 MILLIGRAM, 1/WEEK
     Route: 050
     Dates: start: 20170621
  16. IDURSULFASE [Suspect]
     Active Substance: IDURSULFASE
     Dosage: 12 MILLIGRAM, 1/WEEK
     Route: 050
     Dates: start: 20170621
  17. IDURSULFASE [Suspect]
     Active Substance: IDURSULFASE
     Dosage: 12 MILLIGRAM, 1/WEEK
     Route: 050
     Dates: start: 20170621
  18. IDURSULFASE [Suspect]
     Active Substance: IDURSULFASE
     Dosage: 12 MILLIGRAM, 1/WEEK
     Route: 065
     Dates: start: 20211112
  19. DEXEDRINE [Concomitant]
     Active Substance: DEXTROAMPHETAMINE SULFATE
     Indication: Attention deficit hyperactivity disorder
     Dosage: 5 MILLIGRAM
     Route: 065
  20. RISPERIDONE [Concomitant]
     Active Substance: RISPERIDONE
     Dosage: 0.5 MILLIGRAM
     Route: 065
  21. REGENEX [Concomitant]
     Dosage: UNK
     Route: 065
     Dates: start: 2021

REACTIONS (28)
  - Heart rate increased [Unknown]
  - Pain in extremity [Unknown]
  - Erythema [Unknown]
  - Pyrexia [Not Recovered/Not Resolved]
  - Blood pressure increased [Recovered/Resolved]
  - Screaming [Unknown]
  - Respiratory rate decreased [Unknown]
  - Agitation [Unknown]
  - Poor venous access [Unknown]
  - Drug resistance [Unknown]
  - Administration site discolouration [Unknown]
  - Movement disorder [Unknown]
  - Weight increased [Unknown]
  - Patient uncooperative [Unknown]
  - Blood prolactin increased [Unknown]
  - Heart rate decreased [Unknown]
  - Poor quality sleep [Not Recovered/Not Resolved]
  - Oropharyngeal pain [Not Recovered/Not Resolved]
  - Epstein-Barr virus infection [Not Recovered/Not Resolved]
  - Vital functions abnormal [Unknown]
  - Fatigue [Not Recovered/Not Resolved]
  - Cough [Recovering/Resolving]
  - Infusion related reaction [Unknown]
  - Lacrimation disorder [Not Recovered/Not Resolved]
  - Rhinorrhoea [Not Recovered/Not Resolved]
  - Respiratory rate increased [Recovered/Resolved]
  - Fear of injection [Recovered/Resolved]
  - Product dose omission issue [Unknown]

NARRATIVE: CASE EVENT DATE: 20200403
